FAERS Safety Report 6944754-9 (Version None)
Quarter: 2010Q3

REPORT INFORMATION
  Report Type: 
  Country: None (occurrence: None)
  Receive Date: 20100827
  Receipt Date: 20100817
  Transmission Date: 20110219
  Serious: Yes (Hospitalization)
  Sender: FDA-Public Use
  Company Number: US-ALEXION-A201000956

PATIENT
  Sex: Female

DRUGS (9)
  1. SOLIRIS [Suspect]
     Indication: PAROXYSMAL NOCTURNAL HAEMOGLOBINURIA
     Dosage: 600 MG, QWX4
     Route: 042
     Dates: start: 20090201
  2. SOLIRIS [Suspect]
     Dosage: 900 MG, Q2W
     Route: 042
     Dates: start: 20090402
  3. SOLIRIS [Suspect]
     Dosage: 900 MG, UNK
     Route: 042
     Dates: start: 20100612, end: 20100612
  4. SOLIRIS [Suspect]
     Dosage: 900 MG, UNK
     Route: 042
     Dates: start: 20100624, end: 20100624
  5. SOLIRIS [Suspect]
     Dosage: 900 MG, UNK
     Route: 042
     Dates: start: 20100709, end: 20100709
  6. SOLIRIS [Suspect]
     Dosage: 900 MG, UNK
     Route: 042
     Dates: start: 20100722, end: 20100722
  7. FOLIC ACID [Concomitant]
     Indication: PAROXYSMAL NOCTURNAL HAEMOGLOBINURIA
     Dosage: UNK
     Route: 048
  8. BENADRYL [Concomitant]
  9. TYLENOL (CAPLET) [Concomitant]
     Dosage: 600 MG, SINGLE PRIOR TO 'SOLIRIS INFUSION'
     Route: 048
     Dates: start: 20100805

REACTIONS (6)
  - DEEP VEIN THROMBOSIS [None]
  - DEVICE RELATED SEPSIS [None]
  - DISSEMINATED INTRAVASCULAR COAGULATION [None]
  - STAPHYLOCOCCAL BACTERAEMIA [None]
  - TRANSFUSION REACTION [None]
  - URINARY TRACT INFECTION [None]
